FAERS Safety Report 6743216-1 (Version None)
Quarter: 2010Q2

REPORT INFORMATION
  Report Type: 
  Country: None (occurrence: None)
  Receive Date: 20100525
  Receipt Date: 20100517
  Transmission Date: 20101027
  Serious: Yes (Other)
  Sender: FDA-Public Use
  Company Number: A-CH2010-35159

PATIENT
  Age: 37 Year
  Sex: Female
  Weight: 58 kg

DRUGS (3)
  1. TRACLEER [Suspect]
     Indication: SKIN ULCER
     Dosage: 62.5 MG, BID, ORAL, 125 MG, BID, ORAL
     Route: 048
     Dates: start: 20100208, end: 20100307
  2. TRACLEER [Suspect]
     Indication: SKIN ULCER
     Dosage: 62.5 MG, BID, ORAL, 125 MG, BID, ORAL
     Route: 048
     Dates: start: 20100308, end: 20100316
  3. ENDOPROST (ILOPROST TROMETAMOL) [Concomitant]

REACTIONS (2)
  - DRUG EXPOSURE DURING PREGNANCY [None]
  - PREGNANCY [None]
